FAERS Safety Report 7968005-1 (Version None)
Quarter: 2011Q4

REPORT INFORMATION
  Report Type: 
  Country: None (occurrence: None)
  Receive Date: 20111209
  Receipt Date: 20111129
  Transmission Date: 20120403
  Serious: Yes (Hospitalization)
  Sender: FDA-Public Use
  Company Number: JP-UCBSA-024547

PATIENT
  Age: 64 Year
  Sex: Female

DRUGS (18)
  1. CERTOLIZUMAB PEGOL [Suspect]
     Route: 058
     Dates: start: 20110318, end: 20110715
  2. KETOPROFEN [Concomitant]
     Dosage: ADEQUATE DOSE
     Dates: start: 20100730
  3. CERTOLIZUMAB PEGOL [Suspect]
     Indication: RHEUMATOID ARTHRITIS
     Route: 058
     Dates: start: 20110812, end: 20111104
  4. CERTOLIZUMAB PEGOL [Suspect]
     Route: 058
     Dates: start: 20090316
  5. TROXIPIDE [Concomitant]
     Dosage: DAILY 200 MG
     Dates: start: 20090226
  6. SODIUM PICOSULFATE HYDRATE [Concomitant]
     Dosage: ADEQUATE DOSE
     Dates: start: 20110212
  7. DICLOFENAC SODIUM [Concomitant]
     Dosage: ADEQUATE DOSE
     Dates: start: 20100618, end: 20110207
  8. PRAVASTATIN SODIUM [Concomitant]
     Dosage: 5 MG DAILY
     Dates: start: 20110701
  9. CELECOXIB [Concomitant]
     Indication: RHEUMATOID ARTHRITIS
     Dates: start: 20080508
  10. FLUOROMETHOLONE [Concomitant]
     Dosage: ADEQUATE DOSE
     Dates: start: 20110208, end: 20111006
  11. CERTOLIZUMAB PEGOL [Suspect]
     Route: 058
     Dates: start: 20110121, end: 20110121
  12. CERTOLIZUMAB PEGOL [Suspect]
     Route: 058
     Dates: start: 20090928, end: 20101203
  13. FOLIC ACID [Concomitant]
     Indication: RHEUMATOID ARTHRITIS
     Dates: start: 20071217
  14. AMLODIPINE BESYLATE [Concomitant]
     Dosage: DAILY DOSE 5 MG
     Dates: start: 20100812
  15. PREDNISOLONE [Concomitant]
     Indication: RHEUMATOID ARTHRITIS
     Dosage: 1MG TABLET
     Dates: start: 20101120, end: 20101223
  16. OFLOXACIN [Concomitant]
     Dosage: ADEQUATE DOSE
     Dates: start: 20101228, end: 20110415
  17. METHOTREXATE [Concomitant]
     Indication: RHEUMATOID ARTHRITIS
     Dosage: 4 MG- 2 MG- 2 MG
     Dates: start: 20080509
  18. KETOPROFEN [Concomitant]
     Indication: RHEUMATOID ARTHRITIS
     Dosage: ADEQUATE DOSE
     Dates: start: 20100409

REACTIONS (4)
  - OTITIS MEDIA CHRONIC [None]
  - SUBCUTANEOUS ABSCESS [None]
  - VIITH NERVE PARALYSIS [None]
  - RHEUMATOID ARTHRITIS [None]
